FAERS Safety Report 5779145-X (Version None)
Quarter: 2008Q2

REPORT INFORMATION
  Report Type: 
  Country: None (occurrence: None)
  Receive Date: 20080619
  Receipt Date: 20080610
  Transmission Date: 20081010
  Serious: Yes (Other)
  Sender: FDA-Public Use
  Company Number: CA-JNJFOC-20080602978

PATIENT
  Sex: Female

DRUGS (3)
  1. REMICADE [Suspect]
     Indication: COLITIS ULCERATIVE
     Dosage: RECEIVED 9INFUSIONS
     Route: 042
  2. AZACOLE [Concomitant]
  3. CORTIFOAM [Concomitant]
     Route: 054

REACTIONS (2)
  - ABDOMINAL PAIN [None]
  - VOMITING [None]
